FAERS Safety Report 23043135 (Version 1)
Quarter: 2023Q4

REPORT INFORMATION
  Report Type: Spontaneous
  Country: US (occurrence: US)
  Receive Date: 20231009
  Receipt Date: 20231009
  Transmission Date: 20240110
  Serious: No
  Sender: FDA-Public Use
  Company Number: US-SA-SAC20231003000374

PATIENT
  Age: 76 Year
  Sex: Female
  Weight: 108.8 kg

DRUGS (2)
  1. DUPIXENT [Suspect]
     Active Substance: DUPILUMAB
     Dosage: 300 MG, QOW
     Route: 058
     Dates: start: 20221110
  2. MOUNJARO [Concomitant]
     Active Substance: TIRZEPATIDE
     Dosage: UNK (MOUNJARO 2.5 MG/0.5 PEN INJCTR )

REACTIONS (1)
  - Injection site pain [Unknown]
